FAERS Safety Report 4294111-1 (Version None)
Quarter: 2004Q1

REPORT INFORMATION
  Report Type: 
  Country: None (occurrence: None)
  Receive Date: 20040211
  Receipt Date: 20040206
  Transmission Date: 20041129
  Serious: Yes (Death, Hospitalization)
  Sender: FDA-Public Use
  Company Number: TPA2004A00147

PATIENT
  Age: 78 Year
  Sex: Male

DRUGS (11)
  1. ACTOS [Suspect]
     Dosage: PER ORAL
     Route: 048
     Dates: start: 20001001, end: 20020101
  2. ACTOS [Suspect]
     Dosage: PER ORAL
     Route: 048
     Dates: start: 20020601, end: 20020901
  3. ACTOS [Suspect]
     Dosage: PER ORAL
     Route: 048
     Dates: start: 20020101, end: 20030101
  4. WARFARIN SODIUM [Concomitant]
  5. LASIX [Concomitant]
  6. INSULIN [Concomitant]
  7. AMIODARONE HCL [Concomitant]
  8. POTASSIUM (POTASSUM) [Concomitant]
  9. DILANTIN [Concomitant]
  10. SYNTHROID [Concomitant]
  11. NEURONTIN [Concomitant]

REACTIONS (5)
  - CARDIAC FAILURE CONGESTIVE [None]
  - CIRCULATORY COLLAPSE [None]
  - COMA [None]
  - FLUID OVERLOAD [None]
  - WEIGHT INCREASED [None]
